FAERS Safety Report 9335688 (Version 1)
Quarter: 2013Q2

REPORT INFORMATION
  Report Type: Spontaneous
  Country: US (occurrence: US)
  Receive Date: 20130605
  Receipt Date: 20130605
  Transmission Date: 20140414
  Serious: Yes (Hospitalization)
  Sender: FDA-Public Use
  Company Number: US-GE HEALTHCARE MEDICAL DIAGNOSTICS-VISP-PR-1305S-0654

PATIENT
  Age: 66 Year
  Sex: Female
  Weight: 96.25 kg

DRUGS (2)
  1. VISIPAQUE [Suspect]
     Indication: DIALYSIS DEVICE INSERTION
     Route: 042
     Dates: start: 20130517, end: 20130517
  2. VISIPAQUE [Suspect]
     Indication: DIAGNOSTIC PROCEDURE

REACTIONS (3)
  - Throat tightness [Recovered/Resolved]
  - Dyspnoea [Recovered/Resolved]
  - Chest pain [Recovered/Resolved]
